FAERS Safety Report 9275720 (Version 5)
Quarter: 2013Q2

REPORT INFORMATION
  Report Type: Spontaneous
  Country: IE (occurrence: IE)
  Receive Date: 20130507
  Receipt Date: 20130618
  Transmission Date: 20140414
  Serious: Yes (Death)
  Sender: FDA-Public Use
  Company Number: IE-ROCHE-1221154

PATIENT
  Sex: 0

DRUGS (1)
  1. LARIAM [Suspect]
     Indication: PROPHYLAXIS
     Route: 065

REACTIONS (1)
  - Completed suicide [Fatal]
